FAERS Safety Report 23917257 (Version 5)
Quarter: 2024Q4

REPORT INFORMATION
  Report Type: Spontaneous
  Country: US (occurrence: US)
  Receive Date: 20240529
  Receipt Date: 20241010
  Transmission Date: 20250114
  Serious: Yes (Other)
  Sender: BLUEPRINT MEDICINES
  Company Number: US-Blueprint Medicines Corporation-3687

PATIENT
  Sex: Female
  Weight: 64.2 kg

DRUGS (13)
  1. AYVAKIT [Suspect]
     Active Substance: AVAPRITINIB
     Indication: Systemic mastocytosis
     Route: 065
     Dates: start: 20240505
  2. AYVAKIT [Suspect]
     Active Substance: AVAPRITINIB
     Indication: Indolent systemic mastocytosis
     Route: 065
  3. AYVAKIT [Suspect]
     Active Substance: AVAPRITINIB
     Route: 065
     Dates: start: 20240430
  4. CYANOCOBALAMIN [Concomitant]
     Active Substance: CYANOCOBALAMIN
     Indication: Product used for unknown indication
     Route: 065
  5. CLARITIN [Concomitant]
     Active Substance: LORATADINE
     Indication: Hypothyroidism
     Route: 065
  6. ESTRADIOL [Concomitant]
     Active Substance: ESTRADIOL
     Indication: Vulvovaginal dryness
     Route: 065
  7. PROMETRIUM [Concomitant]
     Active Substance: PROGESTERONE
     Indication: Vulvovaginal dryness
     Route: 065
  8. NATURE-THROID [Concomitant]
     Active Substance: THYROID, PORCINE
     Indication: Hypothyroidism
     Route: 065
  9. METFORMIN [Concomitant]
     Active Substance: METFORMIN HYDROCHLORIDE
     Indication: Glucose tolerance impaired
     Route: 065
  10. Transdermal Patch [Concomitant]
     Indication: Vulvovaginal dryness
     Route: 065
  11. TESTOSTERONE [Concomitant]
     Active Substance: TESTOSTERONE
     Indication: Vulvovaginal dryness
     Route: 065
  12. ZINC PICOLINATE [Concomitant]
     Active Substance: ZINC PICOLINATE
     Indication: General physical condition
     Route: 065
  13. CHROMIUM PICOLINATE [Concomitant]
     Active Substance: CHROMIUM PICOLINATE
     Indication: General physical condition
     Route: 065

REACTIONS (17)
  - Feeling abnormal [Unknown]
  - Full blood count abnormal [Unknown]
  - Skin lesion [Unknown]
  - Arthralgia [Unknown]
  - Myalgia [Unknown]
  - Lacrimation increased [Unknown]
  - Alopecia [Not Recovered/Not Resolved]
  - Headache [Recovered/Resolved]
  - Urine flow decreased [Unknown]
  - Constipation [Unknown]
  - Appetite disorder [Unknown]
  - Weight increased [Unknown]
  - Fatigue [Unknown]
  - Back pain [Unknown]
  - Rash pruritic [Unknown]
  - Rash [Unknown]
  - Cutaneous symptom [Unknown]
